FAERS Safety Report 9175702 (Version 1)
Quarter: 2013Q1

REPORT INFORMATION
  Report Type: Spontaneous
  Country: US (occurrence: US)
  Receive Date: 20130320
  Receipt Date: 20130320
  Transmission Date: 20140127
  Serious: Yes (Hospitalization, Other)
  Sender: FDA-Public Use
  Company Number: CHPA2013US004893

PATIENT
  Age: 73 Year
  Sex: Male

DRUGS (4)
  1. NICOTINE PATCH [Suspect]
     Indication: SMOKING CESSATION THERAPY
     Dosage: 21 MG, QD
     Route: 062
  2. NICOTINE PATCH [Suspect]
     Dosage: 14 MG, QD
     Route: 062
  3. NICOTINE PATCH [Suspect]
     Dosage: 7 MG, QD
     Route: 062
  4. CANNABIS SATIVA SUBSP. INDICA TOP [Concomitant]
     Dosage: UNK, UNK

REACTIONS (6)
  - Myocardial infarction [Recovering/Resolving]
  - Venous occlusion [Recovering/Resolving]
  - Treatment noncompliance [Unknown]
  - Incorrect dose administered [Unknown]
  - Expired drug administered [Unknown]
  - Overdose [Unknown]
